FAERS Safety Report 5423710-6 (Version None)
Quarter: 2007Q3

REPORT INFORMATION
  Report Type: 
  Country: None (occurrence: None)
  Receive Date: 20070727
  Receipt Date: 20060127
  Transmission Date: 20080115
  Serious: Yes (Hospitalization)
  Sender: FDA-Public Use
  Company Number: THYM-10863

PATIENT
  Age: 27 Year
  Sex: Male

DRUGS (6)
  1. ATGAM [Suspect]
     Indication: HEART TRANSPLANT
     Dates: start: 20020301, end: 20020301
  2. CYCLOSPORINE [Concomitant]
  3. GANCICLOVIR [Concomitant]
  4. STEROIDS (UNSPECIFIED) [Concomitant]
  5. MYCOPHENOLATE MOFETIL [Concomitant]
  6. TACROLIMUS [Concomitant]

REACTIONS (1)
  - LYMPHOPROLIFERATIVE DISORDER [None]
